FAERS Safety Report 6964246-0 (Version None)
Quarter: 2010Q3

REPORT INFORMATION
  Report Type: 
  Country: None (occurrence: None)
  Receive Date: 20100903
  Receipt Date: 20100827
  Transmission Date: 20110219
  Serious: No
  Sender: FDA-Public Use
  Company Number: US-BIOGENIDEC-2010BI015704

PATIENT
  Sex: Female

DRUGS (1)
  1. TYSABRI [Suspect]
     Indication: MULTIPLE SCLEROSIS
     Route: 042
     Dates: start: 20070202

REACTIONS (14)
  - BURNING SENSATION [None]
  - DEPRESSION [None]
  - FATIGUE [None]
  - JOINT SWELLING [None]
  - MEMORY IMPAIRMENT [None]
  - MIGRAINE [None]
  - MOOD SWINGS [None]
  - PARAESTHESIA [None]
  - PRURITUS [None]
  - RASH [None]
  - STRESS [None]
  - URTICARIA [None]
  - VAGINAL INFECTION [None]
  - VITAMIN D DECREASED [None]
